FAERS Safety Report 6382220-2 (Version None)
Quarter: 2009Q3

REPORT INFORMATION
  Report Type: 
  Country: None (occurrence: None)
  Receive Date: 20090925
  Receipt Date: 20090917
  Transmission Date: 20100115
  Serious: Yes (Other)
  Sender: FDA-Public Use
  Company Number: 2009US001126

PATIENT

DRUGS (1)
  1. AMEVIVE [Suspect]
     Indication: PSORIASIS
     Dosage: 15 MG, WEEKLY INTRANMUSCULAR
     Route: 030
     Dates: start: 20040227

REACTIONS (1)
  - NO ADVERSE EVENT [None]
